FAERS Safety Report 20885261 (Version 1)
Quarter: 2022Q2

REPORT INFORMATION
  Report Type: Spontaneous
  Country: DE (occurrence: DE)
  Receive Date: 20220527
  Receipt Date: 20220527
  Transmission Date: 20220721
  Serious: Yes (Hospitalization)
  Sender: FDA-Public Use
  Company Number: DE-MYLANLABS-2022M1039410

PATIENT
  Age: 71 Year
  Sex: Male

DRUGS (10)
  1. LINEZOLID [Suspect]
     Active Substance: LINEZOLID
     Indication: Paraneoplastic pemphigus
     Dosage: UNK
     Route: 065
     Dates: start: 2021
  2. GANCICLOVIR [Suspect]
     Active Substance: GANCICLOVIR
     Indication: Paraneoplastic pemphigus
     Dosage: UNK
     Route: 065
     Dates: start: 2021
  3. VORICONAZOLE [Suspect]
     Active Substance: VORICONAZOLE
     Indication: Paraneoplastic pemphigus
     Dosage: UNK
     Route: 065
     Dates: start: 2021
  4. PREDNISOLONE [Suspect]
     Active Substance: PREDNISOLONE
     Indication: Paraneoplastic pemphigus
     Dosage: 500 MILLIGRAM, QD (HIGH DOSE)
     Route: 042
     Dates: start: 2021
  5. CEFTRIAXONE [Suspect]
     Active Substance: CEFTRIAXONE
     Indication: Paraneoplastic pemphigus
     Dosage: 2 GRAM, QD
     Route: 065
     Dates: start: 2021
  6. PIPERACILLIN AND TAZOBACTAM [Suspect]
     Active Substance: PIPERACILLIN SODIUM\TAZOBACTAM SODIUM
     Indication: Paraneoplastic pemphigus
     Dosage: 4.5 GRAM, Q4D
     Route: 065
     Dates: start: 2021
  7. MEROPENEM [Suspect]
     Active Substance: MEROPENEM
     Indication: Paraneoplastic pemphigus
     Dosage: UNK
     Route: 065
     Dates: start: 2021
  8. OBINUTUZUMAB [Concomitant]
     Active Substance: OBINUTUZUMAB
     Indication: Follicular lymphoma stage IV
     Dosage: 100 MILLIGRAM, STARTING DOSE (ABSOLUTE)
     Route: 065
     Dates: start: 202109
  9. OBINUTUZUMAB [Concomitant]
     Active Substance: OBINUTUZUMAB
     Dosage: 1000 MILLIGRAM (SECOND ADMINISTRATION)
     Route: 065
  10. BENDAMUSTINE [Concomitant]
     Active Substance: BENDAMUSTINE
     Indication: Follicular lymphoma stage IV
     Dosage: 125 MILLIGRAM (ON DAY 1 AND 2)
     Route: 065
     Dates: start: 202109

REACTIONS (2)
  - Drug ineffective for unapproved indication [Unknown]
  - Off label use [Unknown]
